FAERS Safety Report 17206658 (Version 2)
Quarter: 2020Q3

REPORT INFORMATION
  Report Type: Spontaneous
  Country: US (occurrence: US)
  Receive Date: 20191227
  Receipt Date: 20200715
  Transmission Date: 20201102
  Serious: Yes (Other)
  Sender: FDA-Public Use
  Company Number: US-ASTRAZENECA-2019SF86902

PATIENT
  Age: 60 Year
  Sex: Male

DRUGS (27)
  1. PROVIGIL [Concomitant]
     Active Substance: MODAFINIL
  2. CELEBREX [Concomitant]
     Active Substance: CELECOXIB
  3. NEXIUM [Suspect]
     Active Substance: ESOMEPRAZOLE MAGNESIUM
     Route: 048
     Dates: start: 20071005
  4. TRADJENTA [Concomitant]
     Active Substance: LINAGLIPTIN
  5. PIOGLITAZONE. [Concomitant]
     Active Substance: PIOGLITAZONE
  6. FAMOTIDINE. [Concomitant]
     Active Substance: FAMOTIDINE
  7. LYRICA [Concomitant]
     Active Substance: PREGABALIN
  8. NEXIUM [Suspect]
     Active Substance: ESOMEPRAZOLE MAGNESIUM
     Dosage: GENERIC
     Route: 048
     Dates: start: 20170906
  9. TAMSULOSIN [Concomitant]
     Active Substance: TAMSULOSIN
  10. LEVAQUIN [Concomitant]
     Active Substance: LEVOFLOXACIN
  11. CENTRUM SILVER [Concomitant]
     Active Substance: MINERALS\VITAMINS
  12. GLIMEPIRIDE. [Concomitant]
     Active Substance: GLIMEPIRIDE
  13. ASPIRIN. [Concomitant]
     Active Substance: ASPIRIN
  14. COMBIGAN [Concomitant]
     Active Substance: BRIMONIDINE TARTRATE\TIMOLOL MALEATE
  15. LUNESTA [Concomitant]
     Active Substance: ESZOPICLONE
  16. DOXYCYCLINE HYCLATE. [Concomitant]
     Active Substance: DOXYCYCLINE HYCLATE
  17. PREGABALIN. [Concomitant]
     Active Substance: PREGABALIN
  18. NEXIUM [Suspect]
     Active Substance: ESOMEPRAZOLE MAGNESIUM
     Route: 048
     Dates: start: 20010201, end: 20151231
  19. COREG [Concomitant]
     Active Substance: CARVEDILOL
  20. KOMBIGLYZE XR [Concomitant]
     Active Substance: METFORMIN HYDROCHLORIDE\SAXAGLIPTIN HYDROCHLORIDE
  21. FENTANYL. [Concomitant]
     Active Substance: FENTANYL
  22. BELSOMRA [Concomitant]
     Active Substance: SUVOREXANT
  23. NITROFURANTOIN. [Concomitant]
     Active Substance: NITROFURANTOIN
  24. ALLOPURINOL. [Concomitant]
     Active Substance: ALLOPURINOL
  25. INVOKANA [Concomitant]
     Active Substance: CANAGLIFLOZIN
  26. ESZOPICLONE. [Concomitant]
     Active Substance: ESZOPICLONE
  27. CARVEDILOL. [Concomitant]
     Active Substance: CARVEDILOL

REACTIONS (5)
  - Nephropathy [Unknown]
  - Nephropathy toxic [Unknown]
  - Chronic kidney disease [Unknown]
  - Renal impairment [Unknown]
  - Renal tubular injury [Unknown]

NARRATIVE: CASE EVENT DATE: 2010
